FAERS Safety Report 15034463 (Version 1)
Quarter: 2018Q2

REPORT INFORMATION
  Report Type: Report from Study
  Country: DE (occurrence: DE)
  Receive Date: 20180620
  Receipt Date: 20180620
  Transmission Date: 20180711
  Serious: Yes (Other)
  Sender: FDA-Public Use
  Company Number: DE-TEVA-2018-DE-909062

PATIENT
  Age: 72 Year
  Sex: Female
  Weight: 56 kg

DRUGS (9)
  1. OXALIPLATIN. [Suspect]
     Active Substance: OXALIPLATIN
     Route: 042
     Dates: start: 20140311
  2. FOLINIC ACID [Concomitant]
     Active Substance: LEUCOVORIN
     Indication: COLORECTAL CANCER
     Dosage: 320 MILLIGRAM DAILY;
     Route: 042
     Dates: start: 20140114, end: 20140115
  3. IRINOTECAN [Concomitant]
     Active Substance: IRINOTECAN
     Indication: COLORECTAL CANCER
     Route: 042
     Dates: start: 20140506, end: 20140506
  4. 5-FLUOROURACIL [Concomitant]
     Active Substance: FLUOROURACIL
     Route: 040
     Dates: start: 20140114, end: 20140129
  5. OXALIPLATIN. [Suspect]
     Active Substance: OXALIPLATIN
     Indication: COLORECTAL CANCER
     Route: 042
     Dates: start: 20140114
  6. RAMIPRIL. [Concomitant]
     Active Substance: RAMIPRIL
     Indication: HYPERTENSION
     Dosage: 2.5 MILLIGRAM DAILY;
     Route: 048
     Dates: start: 20140630
  7. FOLINIC ACID [Concomitant]
     Active Substance: LEUCOVORIN
     Route: 042
     Dates: start: 20140311, end: 20140312
  8. BEVACIZUMAB. [Suspect]
     Active Substance: BEVACIZUMAB
     Indication: COLORECTAL CANCER METASTATIC
     Route: 042
     Dates: start: 20140114, end: 20140701
  9. 5-FLUOROURACIL [Concomitant]
     Active Substance: FLUOROURACIL
     Indication: COLORECTAL CANCER
     Route: 041
     Dates: start: 20140114, end: 20140313

REACTIONS (1)
  - Polyneuropathy [Recovering/Resolving]

NARRATIVE: CASE EVENT DATE: 20140324
